FAERS Safety Report 11289732 (Version 1)
Quarter: 2015Q3

REPORT INFORMATION
  Report Type: Report from Study
  Country: US (occurrence: US)
  Receive Date: 20150721
  Receipt Date: 20150721
  Transmission Date: 20151125
  Serious: Yes (Other)
  Sender: FDA-Public Use
  Company Number: US-ABBVIE-15P-163-1429849-00

PATIENT
  Age: 88 Year
  Sex: Male
  Weight: 97.7 kg

DRUGS (2)
  1. TAK-700 [Concomitant]
     Active Substance: ORTERONEL
     Indication: PROSTATE CANCER
     Dosage: 300 MG, UNK
     Route: 048
     Dates: start: 20150609, end: 20150710
  2. LUPRON DEPOT [Suspect]
     Active Substance: LEUPROLIDE ACETATE
     Indication: PROSTATE CANCER
     Dosage: UNK
     Route: 030
     Dates: start: 20150609, end: 20150609

REACTIONS (3)
  - Oedema peripheral [Recovering/Resolving]
  - Left ventricular dysfunction [Recovering/Resolving]
  - Cardiac failure [Recovering/Resolving]

NARRATIVE: CASE EVENT DATE: 20150708
